FAERS Safety Report 8878807 (Version 2)
Quarter: 2012Q4

REPORT INFORMATION
  Report Type: 
  Country: FR (occurrence: FR)
  Receive Date: 20121026
  Receipt Date: 20121214
  Transmission Date: 20130627
  Serious: Yes (Other)
  Sender: FDA-Public Use
  Company Number: FR-ROCHE-1148683

PATIENT
  Sex: Female
  Weight: 52 kg

DRUGS (16)
  1. BONVIVA [Suspect]
     Indication: OSTEOPENIA
     Route: 042
     Dates: end: 201201
  2. BONVIVA [Suspect]
     Indication: OSTEOPOROSIS
  3. FOSAMAX [Suspect]
     Indication: OSTEOPOROSIS
     Route: 065
  4. CORTANCYL [Concomitant]
  5. PLAQUENIL [Concomitant]
  6. NEURONTIN [Concomitant]
  7. ELISOR [Concomitant]
  8. ZITHROMAX [Concomitant]
  9. CORTISONE [Concomitant]
     Indication: RHEUMATOID ARTHRITIS
     Route: 065
  10. CORTISONE [Concomitant]
     Indication: SJOGREN^S SYNDROME
  11. CALCIDOSE [Concomitant]
  12. SULFARLEM [Concomitant]
  13. INEXIUM [Concomitant]
  14. LYRICA [Concomitant]
     Route: 065
  15. KARDEGIC [Concomitant]
  16. RIVOTRIL [Concomitant]

REACTIONS (1)
  - Exposed bone in jaw [Recovering/Resolving]
